FAERS Safety Report 23054380 (Version 1)
Quarter: 2023Q4

REPORT INFORMATION
  Report Type: Spontaneous
  Country: US (occurrence: US)
  Receive Date: 20231011
  Receipt Date: 20231011
  Transmission Date: 20240110
  Serious: Yes (Other)
  Sender: FDA-Public Use
  Company Number: US-TEVA-2023-US-2934770

PATIENT
  Sex: Female

DRUGS (1)
  1. GLYBURIDE [Suspect]
     Active Substance: GLYBURIDE
     Indication: Product used for unknown indication
     Route: 065

REACTIONS (4)
  - Blood glucose decreased [Recovered/Resolved]
  - Incoherent [Unknown]
  - Speech disorder [Unknown]
  - Mobility decreased [Unknown]
